FAERS Safety Report 17147568 (Version 2)
Quarter: 2020Q3

REPORT INFORMATION
  Report Type: Spontaneous
  Country: US (occurrence: US)
  Receive Date: 20191212
  Receipt Date: 20200923
  Transmission Date: 20201102
  Serious: Yes (Disabling)
  Sender: FDA-Public Use
  Company Number: US-TEVA-2019-US-1150604

PATIENT
  Age: 59 Year
  Sex: Female
  Weight: 78.09 kg

DRUGS (16)
  1. DOCETAXEL INJECTION [Suspect]
     Active Substance: DOCETAXEL
     Indication: BREAST CANCER
     Dosage: EVERY 3 WEEKS FOR 6 CYCLES
     Route: 065
     Dates: start: 20170720, end: 20171102
  2. SIMVASTATIN. [Concomitant]
     Active Substance: SIMVASTATIN
     Dates: start: 2017, end: 2018
  3. VIVELLE?DOT [Concomitant]
     Active Substance: ESTRADIOL
     Dosage: ONGOING
     Route: 065
  4. DIAZEPAM. [Concomitant]
     Active Substance: DIAZEPAM
     Dates: start: 201612, end: 201707
  5. HYDROCHLOROTHIAZIDE. [Concomitant]
     Active Substance: HYDROCHLOROTHIAZIDE
     Dates: start: 2017, end: 2018
  6. ESTRACE [Concomitant]
     Active Substance: ESTRADIOL
     Dosage: ONGOING
     Route: 067
  7. FLONASE [Concomitant]
     Active Substance: FLUTICASONE PROPIONATE
     Dosage: ONGOING
     Route: 065
  8. SIMVASTATIN. [Concomitant]
     Active Substance: SIMVASTATIN
     Dates: start: 201406, end: 201707
  9. HYDROCHLOROTHIAZIDE. [Concomitant]
     Active Substance: HYDROCHLOROTHIAZIDE
     Dates: start: 201406, end: 201707
  10. PERTUZUMAB. [Concomitant]
     Active Substance: PERTUZUMAB
     Dates: start: 20170720, end: 2018
  11. FLONASE [Concomitant]
     Active Substance: FLUTICASONE PROPIONATE
     Dates: start: 201410, end: 201612
  12. PARAPLATIN [Suspect]
     Active Substance: CARBOPLATIN
     Indication: BREAST CANCER
     Dosage: TOGETHER EVERY 3 WEEKS FOR 6 CYCLES
     Route: 065
     Dates: start: 20170720, end: 20171102
  13. ESTRACE [Concomitant]
     Active Substance: ESTRADIOL
     Route: 067
     Dates: start: 20150915, end: 2015
  14. DIAZEPAM. [Concomitant]
     Active Substance: DIAZEPAM
     Dosage: ONGOING
  15. TRASTUZUMAB. [Concomitant]
     Active Substance: TRASTUZUMAB
     Dates: start: 20150720, end: 2018
  16. VIVELLE?DOT [Concomitant]
     Active Substance: ESTRADIOL
     Dates: start: 2016, end: 2016

REACTIONS (1)
  - Alopecia universalis [Not Recovered/Not Resolved]

NARRATIVE: CASE EVENT DATE: 201712
